FAERS Safety Report 5872774-4 (Version None)
Quarter: 2008Q3

REPORT INFORMATION
  Report Type: 
  Country: None (occurrence: None)
  Receive Date: 20080829
  Receipt Date: 20071105
  Transmission Date: 20090109
  Serious: Yes (Hospitalization, Other)
  Sender: FDA-Public Use
  Company Number: 2007-01070FE

PATIENT
  Age: 49 Year
  Sex: Male

DRUGS (3)
  1. TRH (TRH) (PROTIRELIN) [Suspect]
     Indication: DIAGNOSTIC PROCEDURE
     Dosage: 0.2 MG ONCE IV
     Route: 042
  2. GNRH (LHRH) () (GONADORELIN) [Suspect]
     Indication: DIAGNOSTIC PROCEDURE
     Dosage: 0.1 MG ONCE IV
     Route: 042
  3. ACTH [Suspect]
     Indication: DIAGNOSTIC PROCEDURE
     Dosage: 0.25 MG ONCE IV
     Route: 042

REACTIONS (4)
  - BLINDNESS [None]
  - HEADACHE [None]
  - NAUSEA [None]
  - VISION BLURRED [None]
